FAERS Safety Report 7202815-3 (Version None)
Quarter: 2010Q4

REPORT INFORMATION
  Report Type: 
  Country: None (occurrence: None)
  Receive Date: 20101229
  Receipt Date: 20101218
  Transmission Date: 20110411
  Serious: Yes (Other)
  Sender: FDA-Public Use
  Company Number: US-BAXTER-2010BH030909

PATIENT
  Sex: Female

DRUGS (4)
  1. MORPHINE SULFATE [Suspect]
     Indication: ANAESTHESIA
     Route: 037
  2. FENTANYL CITRATE [Suspect]
     Indication: ANAESTHESIA
     Route: 037
  3. BUPIVACAINE, UNSPECIFIED [Suspect]
     Indication: ANAESTHESIA
     Route: 037
  4. SODIUM CITRATE [Concomitant]
     Indication: PROPHYLAXIS
     Route: 048

REACTIONS (2)
  - BRADYCARDIA [None]
  - DRUG EXPOSURE DURING PREGNANCY [None]
